FAERS Safety Report 15117362 (Version 1)
Quarter: 2018Q3

REPORT INFORMATION
  Report Type: Spontaneous
  Country: US (occurrence: US)
  Receive Date: 20180613
  Receipt Date: 20180613
  Transmission Date: 20181010
  Serious: Yes (Disabling)
  Sender: FDA-Public Use
  Company Number: None

PATIENT
  Age: 60 Year
  Sex: Female
  Weight: 81.9 kg

DRUGS (1)
  1. ACYCLOVIR. [Suspect]
     Active Substance: ACYCLOVIR
     Indication: HERPES ZOSTER
     Dosage: ?          QUANTITY:2 CAPSULE(S);OTHER FREQUENCY:5 TIMES A DAY;?
     Route: 048

REACTIONS (2)
  - Drug prescribing error [None]
  - Drug level below therapeutic [None]

NARRATIVE: CASE EVENT DATE: 20161029
